FAERS Safety Report 9669731 (Version 3)
Quarter: 2014Q1

REPORT INFORMATION
  Report Type: Report from Study
  Country: JP (occurrence: JP)
  Receive Date: 20131105
  Receipt Date: 20140128
  Transmission Date: 20141002
  Serious: Yes (Death, Hospitalization)
  Sender: FDA-Public Use
  Company Number: JP-JNJFOC-20131100706

PATIENT
  Age: 62 Year
  Sex: Male
  Weight: 47 kg

DRUGS (18)
  1. SIMPONI [Suspect]
     Indication: RHEUMATOID ARTHRITIS
     Route: 058
     Dates: start: 20130621, end: 20130621
  2. SIMPONI [Suspect]
     Indication: RHEUMATOID ARTHRITIS
     Route: 058
     Dates: start: 20130530, end: 20130530
  3. METHOTREXATE [Suspect]
     Indication: RHEUMATOID ARTHRITIS
     Route: 065
     Dates: end: 20130725
  4. METHOTREXATE [Suspect]
     Indication: RHEUMATOID ARTHRITIS
     Route: 065
     Dates: start: 20100113
  5. BAYASPIRIN [Concomitant]
     Indication: CORONARY ARTERIAL STENT INSERTION
     Route: 048
  6. DUROTEP MT PATCH [Concomitant]
     Indication: RHEUMATOID ARTHRITIS
     Route: 062
  7. PURSENNID [Concomitant]
     Indication: RHEUMATOID ARTHRITIS
     Route: 048
     Dates: start: 20130709, end: 20130727
  8. CALONAL [Concomitant]
     Indication: RHEUMATOID ARTHRITIS
     Route: 065
     Dates: end: 20130613
  9. VOLTAREN [Concomitant]
     Indication: RHEUMATOID ARTHRITIS
     Route: 054
     Dates: end: 20130719
  10. LOXONIN [Concomitant]
     Indication: RHEUMATOID ARTHRITIS
     Route: 065
     Dates: start: 20130715, end: 20130727
  11. FOLIAMIN [Concomitant]
     Indication: PROPHYLAXIS
     Route: 065
  12. MARZULENE-S [Concomitant]
     Indication: PROPHYLAXIS
     Route: 048
  13. MAGMITT [Concomitant]
     Indication: PROPHYLAXIS
     Route: 048
  14. LENDORMIN [Concomitant]
     Indication: INSOMNIA
     Route: 048
  15. LIPITOR [Concomitant]
     Indication: HYPERCHOLESTEROLAEMIA
     Route: 048
  16. SPIRIVA [Concomitant]
     Indication: EMPHYSEMA
     Route: 055
  17. ADOAIR [Concomitant]
     Indication: EMPHYSEMA
     Route: 055
  18. MUCOSTA [Concomitant]
     Indication: PROPHYLAXIS
     Route: 065

REACTIONS (3)
  - Pneumonia [Fatal]
  - Metastases to liver [Fatal]
  - Metastases to lung [Fatal]
